FAERS Safety Report 4412487-9 (Version None)
Quarter: 2004Q2

REPORT INFORMATION
  Report Type: 
  Country: None (occurrence: None)
  Receive Date: 20040630
  Receipt Date: 20040402
  Transmission Date: 20050107
  Serious: No
  Sender: FDA-Public Use
  Company Number: 04P-163-0255817-00

PATIENT
  Age: 59 Year
  Sex: Male
  Weight: 81.6475 kg

DRUGS (3)
  1. HUMIRA [Suspect]
     Indication: RHEUMATOID ARTHRITIS
     Dosage: 40 MG, 1 IN 2 WK, SUBCUTANEOUS
     Route: 058
     Dates: start: 20040201
  2. ALLOPURINOL [Concomitant]
  3. ZOLPIDEM TARTRATE [Concomitant]

REACTIONS (2)
  - DEVICE FAILURE [None]
  - INJECTION SITE PAIN [None]
